FAERS Safety Report 13927447 (Version 2)
Quarter: 2017Q3

REPORT INFORMATION
  Report Type: Spontaneous
  Country: US (occurrence: US)
  Receive Date: 20170831
  Receipt Date: 20170920
  Transmission Date: 20171127
  Serious: No
  Sender: FDA-Public Use
  Company Number: US-GLAXOSMITHKLINE-US2017134758

PATIENT
  Sex: Female
  Weight: 76.19 kg

DRUGS (5)
  1. DILTIAZEM. [Concomitant]
     Active Substance: DILTIAZEM
  2. ZALEPLON. [Concomitant]
     Active Substance: ZALEPLON
  3. SYMBICORT [Concomitant]
     Active Substance: BUDESONIDE\FORMOTEROL FUMARATE DIHYDRATE
  4. SINGULAIR [Concomitant]
     Active Substance: MONTELUKAST SODIUM
  5. NUCALA [Suspect]
     Active Substance: MEPOLIZUMAB
     Indication: ASTHMA
     Dosage: 100 MG, CYC
     Route: 058
     Dates: start: 20170718, end: 20170718

REACTIONS (11)
  - Dermatitis [Unknown]
  - Rash [Unknown]
  - Rash vesicular [Recovering/Resolving]
  - Skin induration [Unknown]
  - Rash maculo-papular [Unknown]
  - Scab [Unknown]
  - Rash erythematous [Not Recovered/Not Resolved]
  - Rash pruritic [Not Recovered/Not Resolved]
  - Cough [Unknown]
  - Urticaria [Unknown]
  - Blister [Unknown]
